FAERS Safety Report 15158117 (Version 5)
Quarter: 2018Q4

REPORT INFORMATION
  Report Type: Spontaneous
  Country: GB (occurrence: GB)
  Receive Date: 20180718
  Receipt Date: 20181228
  Transmission Date: 20190204
  Serious: Yes (Life-Threatening, Hospitalization, Other)
  Sender: FDA-Public Use
  Company Number: GB-MYLANLABS-2018M1051243

PATIENT
  Age: 29 Year
  Sex: Female

DRUGS (21)
  1. ATROVENT [Suspect]
     Active Substance: IPRATROPIUM BROMIDE
     Indication: ASTHMA
     Dosage: 0.5 MG, UNK
     Route: 005
  2. THEOPHYLLINE [Suspect]
     Active Substance: THEOPHYLLINE ANHYDROUS
     Indication: ASTHMA
     Dosage: UNK
     Route: 065
  3. SALBUTAMOL [Suspect]
     Active Substance: ALBUTEROL
     Dosage: 15 MG, UNK (NEBULISATION)
     Route: 065
  4. SALBUTAMOL [Suspect]
     Active Substance: ALBUTEROL
     Dosage: UNK
     Route: 042
  5. SEVOFLURANE. [Suspect]
     Active Substance: SEVOFLURANE
     Indication: ASTHMA
     Dosage: 8 %, UNK
     Route: 055
  6. EPINEPHRINE. [Suspect]
     Active Substance: EPINEPHRINE
     Dosage: UNK
     Route: 065
  7. MONTELUKAST [Suspect]
     Active Substance: MONTELUKAST SODIUM
     Dosage: UNK
     Route: 065
  8. HYDROCORTISONE. [Suspect]
     Active Substance: HYDROCORTISONE
     Indication: ASTHMA
     Dosage: 100 MG, UNK
     Route: 042
  9. MAGNESIUM [Suspect]
     Active Substance: MAGNESIUM
     Indication: ASTHMA
     Dosage: 2 G, UNK
     Route: 042
  10. SALBUTAMOL [Suspect]
     Active Substance: ALBUTEROL
     Dosage: 250 MG, UNK
     Route: 042
  11. MAGNESIUM [Suspect]
     Active Substance: MAGNESIUM
     Dosage: UNK
  12. ATROVENT [Suspect]
     Active Substance: IPRATROPIUM BROMIDE
     Dosage: 0.5 MG, UNK (NEBULISATION)
     Route: 065
  13. SALBUTAMOL [Suspect]
     Active Substance: ALBUTEROL
     Dosage: UNK
  14. PREDNISOLONE. [Suspect]
     Active Substance: PREDNISOLONE
     Indication: ASTHMA
     Dosage: UNK
     Route: 048
  15. EPINEPHRINE. [Suspect]
     Active Substance: EPINEPHRINE
     Indication: ASTHMA
     Dosage: 350 ?G, UNK (DILUTED IN SMALL INCREMENTS)
     Route: 065
  16. SALBUTAMOL [Suspect]
     Active Substance: ALBUTEROL
     Indication: ASTHMA
     Dosage: 250 ?G, UNK (2 BOLUSES)
     Route: 040
  17. PREDNISOLONE. [Suspect]
     Active Substance: PREDNISOLONE
     Dosage: 30 MG, UNK
     Route: 065
  18. KETAMINE [Suspect]
     Active Substance: KETAMINE
     Indication: ASTHMA
     Dosage: UNK (INCREASED TO 45 MICROG/KG/MIN)
     Route: 042
  19. MONTELUKAST [Suspect]
     Active Substance: MONTELUKAST SODIUM
     Indication: ASTHMA
     Dosage: UNK
     Route: 048
  20. SALBUTAMOL [Suspect]
     Active Substance: ALBUTEROL
     Dosage: UNK (NEBULISER)
  21. SALBUTAMOL [Suspect]
     Active Substance: ALBUTEROL
     Dosage: 12.3 MG, UNK (FORM-INTRAVENOUS INFUSION)
     Route: 042

REACTIONS (20)
  - Dyspnoea [Recovering/Resolving]
  - Blood bicarbonate decreased [Recovering/Resolving]
  - Status asthmaticus [Recovered/Resolved]
  - Acute respiratory failure [Recovered/Resolved]
  - PO2 decreased [Recovering/Resolving]
  - Oxygen saturation decreased [Recovering/Resolving]
  - Asthma [Recovered/Resolved]
  - Blood lactic acid increased [Recovering/Resolving]
  - PCO2 increased [Recovering/Resolving]
  - Blood pH decreased [Unknown]
  - Respiratory rate increased [Recovering/Resolving]
  - Lung hyperinflation [Recovering/Resolving]
  - Drug ineffective [Recovering/Resolving]
  - Bronchospasm [Recovering/Resolving]
  - Cyanosis [Recovering/Resolving]
  - Off label use [Unknown]
  - Wheezing [Recovering/Resolving]
  - Respiratory acidosis [Recovering/Resolving]
  - Airway peak pressure increased [Recovering/Resolving]
  - Hypercapnia [Unknown]
